FAERS Safety Report 9266074 (Version 1)
Quarter: 2013Q2

REPORT INFORMATION
  Report Type: Spontaneous
  Country: CA (occurrence: CA)
  Receive Date: 20130501
  Receipt Date: 20130501
  Transmission Date: 20140414
  Serious: Yes (Other)
  Sender: FDA-Public Use
  Company Number: CA-009507513-1304CAN009009

PATIENT
  Age: 62 Year
  Sex: Male
  Weight: 75 kg

DRUGS (5)
  1. VICTRELIS TRIPLE [Suspect]
     Indication: HEPATITIS C
     Dosage: 120 MICROGRAM, QW
     Route: 058
     Dates: start: 20120925
  2. VICTRELIS TRIPLE [Suspect]
     Dosage: 600 MG, QD
     Route: 048
     Dates: start: 20120925
  3. VICTRELIS TRIPLE [Suspect]
     Dosage: 2400 MG, UNK
     Dates: start: 20120925
  4. TRAMADOL HYDROCHLORIDE [Concomitant]
     Dosage: 100 MG, QD
  5. LITHIUM CARBONATE [Concomitant]
     Indication: BIPOLAR DISORDER
     Dosage: 300 MG, TID

REACTIONS (5)
  - White blood cell count decreased [Recovering/Resolving]
  - Platelet count decreased [Recovering/Resolving]
  - Renal impairment [Recovering/Resolving]
  - Blood creatinine increased [Recovering/Resolving]
  - Anaemia [Recovering/Resolving]
